FAERS Safety Report 9320163 (Version 3)
Quarter: 2014Q1

REPORT INFORMATION
  Report Type: Spontaneous
  Country: US (occurrence: US)
  Receive Date: 20130530
  Receipt Date: 20140321
  Transmission Date: 20141002
  Serious: Yes (Death, Hospitalization, Other)
  Sender: FDA-Public Use
  Company Number: US-B.I. PHARMACEUTICALS,INC./RIDGEFIELD-2013-BI-14914BP

PATIENT
  Age: 67 Year
  Sex: Female
  Weight: 89.8 kg

DRUGS (17)
  1. PRADAXA [Suspect]
     Indication: PRODUCT USED FOR UNKNOWN INDICATION
     Dosage: 300 MG
     Route: 065
     Dates: start: 20110118, end: 20110603
  2. COREG [Concomitant]
     Dosage: 50 MG
     Route: 065
  3. PROCARDIA XL [Concomitant]
     Dosage: 60 MG
     Route: 065
  4. PRAVACHOL [Concomitant]
     Dosage: 20 MG
     Route: 065
  5. PLAVIX [Concomitant]
     Route: 065
  6. NEURONTIN [Concomitant]
     Dosage: 900 MG
     Route: 065
  7. PREDNISONE [Concomitant]
     Route: 065
  8. PROMETHAZINE [Concomitant]
     Route: 065
  9. CHLORZOXAZONE [Concomitant]
     Route: 065
  10. AZITHROMYCIN [Concomitant]
     Route: 065
  11. PROTONIX [Concomitant]
     Indication: GASTROOESOPHAGEAL REFLUX DISEASE
     Dosage: 40 MG
     Route: 048
  12. FISH OIL [Concomitant]
     Route: 065
  13. LUTEIN [Concomitant]
     Route: 065
  14. TOPAMAX [Concomitant]
     Dosage: 50 MG
     Route: 065
  15. MIRAPEX [Concomitant]
     Dosage: 2 MG
     Route: 048
  16. LEVOXYL [Concomitant]
     Dosage: 88 MCG
     Route: 048
  17. ASPIRIN [Concomitant]
     Dosage: 81 MG
     Route: 065

REACTIONS (7)
  - Lung cancer metastatic [Fatal]
  - Gastrointestinal haemorrhage [Unknown]
  - Haemorrhagic stroke [Unknown]
  - Cerebral haemorrhage [Unknown]
  - Ischaemic stroke [Unknown]
  - Embolic stroke [Unknown]
  - Iron deficiency anaemia [Unknown]
